FAERS Safety Report 11138605 (Version 2)
Quarter: 2015Q2

REPORT INFORMATION
  Report Type: Spontaneous
  Country: JP (occurrence: JP)
  Receive Date: 20150527
  Receipt Date: 20150616
  Transmission Date: 20150821
  Serious: Yes (Other)
  Sender: FDA-Public Use
  Company Number: JP-009507513-1505JPN012807

PATIENT
  Sex: Female

DRUGS (4)
  1. GLUFAST [Concomitant]
     Active Substance: MITIGLINIDE
     Indication: DIABETES MELLITUS
     Dosage: DAILY DOSAGE UNKNOWN
     Route: 065
  2. SEIBULE [Concomitant]
     Active Substance: MIGLITOL
     Indication: DIABETES MELLITUS
     Dosage: DAILY DOSE UNKNOWN
     Route: 065
  3. SIGMART [Concomitant]
     Active Substance: NICORANDIL
     Dosage: DAILY DOSAGE UNKNOWN
     Route: 065
  4. JANUVIA [Suspect]
     Active Substance: SITAGLIPTIN PHOSPHATE
     Indication: DIABETES MELLITUS
     Dosage: DAILY DOSAGE UNKNOWN
     Route: 048
     Dates: start: 201504, end: 20150520

REACTIONS (1)
  - Pemphigoid [Unknown]

NARRATIVE: CASE EVENT DATE: 201505
